FAERS Safety Report 19805046 (Version 6)
Quarter: 2021Q4

REPORT INFORMATION
  Report Type: Spontaneous
  Country: IT (occurrence: IT)
  Receive Date: 20210908
  Receipt Date: 20211208
  Transmission Date: 20220303
  Serious: Yes (Life-Threatening, Hospitalization, Other)
  Sender: FDA-Public Use
  Company Number: IT-CELLTRION INC.-2021IT011988

PATIENT

DRUGS (16)
  1. RITUXIMAB [Suspect]
     Active Substance: RITUXIMAB
     Indication: B-cell lymphoma
     Dosage: RECEIVED 6 COURSES OF R-CHOP/COMPLETED SIX COURSES OF R-CHOP
     Route: 065
     Dates: end: 202002
  2. RITUXIMAB [Suspect]
     Active Substance: RITUXIMAB
     Indication: Diffuse large B-cell lymphoma
     Dosage: 6 COURSES
     Route: 065
     Dates: start: 202002
  3. RITUXIMAB [Suspect]
     Active Substance: RITUXIMAB
     Dosage: UNK UNK, NO TREATMENT
     Route: 065
     Dates: start: 202002
  4. DOXORUBICIN [Suspect]
     Active Substance: DOXORUBICIN
     Indication: B-cell lymphoma
     Dosage: RECEIVED SIX COURSES OF R-CHOP/COMPLETED SIX COURSES OF R-CHOP
     Route: 065
     Dates: end: 202002
  5. DOXORUBICIN [Suspect]
     Active Substance: DOXORUBICIN
     Indication: Diffuse large B-cell lymphoma
     Dosage: UNK
  6. CYCLOPHOSPHAMIDE [Suspect]
     Active Substance: CYCLOPHOSPHAMIDE
     Indication: Diffuse large B-cell lymphoma
     Dosage: COMPLETED 6 COURSES OF R-CHOP
     Route: 065
     Dates: start: 202002
  7. PREDNISONE [Suspect]
     Active Substance: PREDNISONE
     Indication: B-cell lymphoma
     Dosage: RECEIVED SIX COURSES OF R-CHOP/COMPLETED SIX COURSES OF R-CHOP
     Route: 065
     Dates: end: 202002
  8. PREDNISONE [Suspect]
     Active Substance: PREDNISONE
     Indication: Diffuse large B-cell lymphoma
     Dosage: UNK
  9. VINCRISTINE [Suspect]
     Active Substance: VINCRISTINE
     Indication: B-cell lymphoma
     Dosage: RECEIVED SIX COURSES OF R-CHOP/COMPLETED SIX COURSES OF R-CHOP
     Route: 065
     Dates: end: 202002
  10. VINCRISTINE [Suspect]
     Active Substance: VINCRISTINE
     Indication: Diffuse large B-cell lymphoma
     Dosage: UNK
  11. MABTHERA [Suspect]
     Active Substance: RITUXIMAB
     Indication: B-cell lymphoma
     Dosage: 375 MG/M2, UNKNOWN, TOTAL 7 DOSES
     Route: 042
     Dates: start: 20191104, end: 20200326
  12. MABTHERA [Suspect]
     Active Substance: RITUXIMAB
     Dosage: 375 MG/M2, UNKNOWN, TOTAL 7 DOSES
     Route: 058
     Dates: start: 20191104, end: 20200326
  13. CYCLOPHOSPHAMIDE\DOXORUBICIN\PREDNISONE\VINCRISTINE [Concomitant]
     Active Substance: CYCLOPHOSPHAMIDE\DOXORUBICIN\PREDNISONE\VINCRISTINE
     Indication: B-cell lymphoma
     Dosage: UNK
     Route: 065
     Dates: start: 202002
  14. CYCLOPHOSPHAMIDE [Concomitant]
     Active Substance: CYCLOPHOSPHAMIDE
     Indication: B-cell lymphoma
     Dosage: RECEIVED 6 COURSES OF R-CHOP
     Route: 065
     Dates: end: 202002
  15. HYDROXYCHLOROQUINE [Concomitant]
     Active Substance: HYDROXYCHLOROQUINE
     Indication: COVID-19 pneumonia
     Dosage: UNK
     Route: 065
     Dates: start: 2020
  16. HYPERIMMUNE PLASMA [Concomitant]
     Indication: COVID-19 pneumonia
     Dosage: 210 ML, RECEIVED THREE INFUSIONS (EACH 210ML ON AN ALTERNATE DAY BASIS)
     Route: 050
     Dates: start: 2020

REACTIONS (3)
  - COVID-19 pneumonia [Recovered/Resolved]
  - Secondary immunodeficiency [Unknown]
  - Off label use [Unknown]

NARRATIVE: CASE EVENT DATE: 20200101
